FAERS Safety Report 15113288 (Version 1)
Quarter: 2018Q3

REPORT INFORMATION
  Report Type: Spontaneous
  Country: US (occurrence: US)
  Receive Date: 20180706
  Receipt Date: 20180706
  Transmission Date: 20181010
  Serious: No
  Sender: FDA-Public Use
  Company Number: US-GLENMARK PHARMACEUTICALS-2018GMK035384

PATIENT

DRUGS (2)
  1. MUPIROCIN. [Suspect]
     Active Substance: MUPIROCIN
     Indication: SKIN INFECTION
  2. MUPIROCIN. [Suspect]
     Active Substance: MUPIROCIN
     Indication: MELANOCYTIC NAEVUS
     Dosage: UNK
     Route: 061

REACTIONS (5)
  - Feeling abnormal [Not Recovered/Not Resolved]
  - Pain [Recovered/Resolved]
  - Fatigue [Unknown]
  - Product use in unapproved indication [Unknown]
  - Lethargy [Unknown]
